FAERS Safety Report 4801231-9 (Version None)
Quarter: 2005Q4

REPORT INFORMATION
  Report Type: 
  Country: None (occurrence: None)
  Receive Date: 20051011
  Receipt Date: 20050927
  Transmission Date: 20060501
  Serious: Yes (Hospitalization)
  Sender: FDA-Public Use
  Company Number: CH-2005-017698

PATIENT
  Age: 60 Year
  Sex: Male

DRUGS (5)
  1. FLUDARA [Suspect]
     Indication: CHRONIC LYMPHOCYTIC LEUKAEMIA STAGE 4
     Dosage: 25 MG/M2, INTRAVENOUS
     Route: 042
     Dates: start: 20050709, end: 20050711
  2. BLOPRESS (CANDESARTAN CILEXETIL) [Concomitant]
  3. LASIX [Concomitant]
  4. MIXTARD (INSULIN INJECTION, ISOPHANE,  INSULIN) [Concomitant]
  5. ALLOPURINOL [Concomitant]

REACTIONS (4)
  - BLOOD CREATININE INCREASED [None]
  - CREATININE RENAL CLEARANCE DECREASED [None]
  - GLOMERULONEPHROPATHY [None]
  - RENAL TUBULAR DISORDER [None]
